FAERS Safety Report 17085509 (Version 1)
Quarter: 2019Q4

REPORT INFORMATION
  Report Type: Spontaneous
  Country: US (occurrence: US)
  Receive Date: 20191127
  Receipt Date: 20191127
  Transmission Date: 20200122
  Serious: Yes (Hospitalization)
  Sender: FDA-Public Use
  Company Number: None

PATIENT
  Age: 70 Year
  Sex: Female

DRUGS (6)
  1. IPRATROP BROM [Concomitant]
  2. EFFEXOR/FOSAMAX [Concomitant]
  3. BUDESONIDE. [Suspect]
     Active Substance: BUDESONIDE
     Indication: ASTHMA
     Dosage: ?          OTHER FREQUENCY:EVERY 12 HOURS;?
     Route: 055
     Dates: start: 20190426
  4. LEXAPRO/PLAVIX [Concomitant]
  5. LEVALBUTEROL. [Concomitant]
     Active Substance: LEVALBUTEROL
  6. ASPIRIN. [Concomitant]
     Active Substance: ASPIRIN

REACTIONS (1)
  - Hospitalisation [None]

NARRATIVE: CASE EVENT DATE: 20191125
